FAERS Safety Report 11602504 (Version 1)
Quarter: 2015Q4

REPORT INFORMATION
  Report Type: Spontaneous
  Country: US (occurrence: US)
  Receive Date: 20151006
  Receipt Date: 20151006
  Transmission Date: 20160304
  Serious: No
  Sender: FDA-Public Use
  Company Number: US-AMGEN-USASP2015071720

PATIENT
  Age: 61 Year
  Sex: Female

DRUGS (1)
  1. PROLIA [Suspect]
     Active Substance: DENOSUMAB
     Indication: PRODUCT USED FOR UNKNOWN INDICATION
     Dosage: UNK
     Route: 065
     Dates: start: 201505

REACTIONS (6)
  - Rash [Unknown]
  - Dermatitis contact [Unknown]
  - Miliaria [Unknown]
  - Sunburn [Unknown]
  - Bone disorder [Unknown]
  - Eye swelling [Unknown]

NARRATIVE: CASE EVENT DATE: 2015
